FAERS Safety Report 13229574 (Version 3)
Quarter: 2017Q4

REPORT INFORMATION
  Report Type: Spontaneous
  Country: US (occurrence: US)
  Receive Date: 20170214
  Receipt Date: 20171129
  Transmission Date: 20180320
  Serious: Yes (Other)
  Sender: FDA-Public Use
  Company Number: US-BRISTOL-MYERS SQUIBB COMPANY-BMS-2017-011433

PATIENT
  Sex: Female
  Weight: 51.7 kg

DRUGS (2)
  1. OPDIVO [Suspect]
     Active Substance: NIVOLUMAB
     Indication: PRODUCT USED FOR UNKNOWN INDICATION
     Dosage: UNK
     Route: 042
     Dates: start: 201610
  2. OPDIVO [Suspect]
     Active Substance: NIVOLUMAB
     Indication: NON-SMALL CELL LUNG CANCER
     Dosage: 300 MG, Q2WK
     Route: 042
     Dates: start: 201512

REACTIONS (13)
  - Colitis [Unknown]
  - Chronic sinusitis [Unknown]
  - Pancreatitis chronic [Unknown]
  - Productive cough [Unknown]
  - Clostridium difficile infection [Unknown]
  - Urinary tract infection [Unknown]
  - Diarrhoea [Unknown]
  - Pancreatic failure [Unknown]
  - Sinus disorder [Unknown]
  - Weight decreased [Unknown]
  - Decreased appetite [Unknown]
  - Aphonia [Unknown]
  - Abdominal pain upper [Unknown]
